FAERS Safety Report 17214774 (Version 4)
Quarter: 2020Q1

REPORT INFORMATION
  Report Type: Spontaneous
  Country: NZ (occurrence: NZ)
  Receive Date: 20191230
  Receipt Date: 20200203
  Transmission Date: 20200409
  Serious: Yes (Death)
  Sender: FDA-Public Use
  Company Number: NZ-MYLANLABS-2019M1128101

PATIENT
  Age: 31 Year
  Sex: Male

DRUGS (1)
  1. LOGEM [Suspect]
     Active Substance: LAMOTRIGINE
     Indication: EPILEPSY
     Dosage: UNK
     Dates: start: 2019

REACTIONS (3)
  - Cardiac arrest [Fatal]
  - Product substitution issue [Unknown]
  - Seizure [Fatal]

NARRATIVE: CASE EVENT DATE: 2019
